FAERS Safety Report 5957461-6 (Version None)
Quarter: 2008Q4

REPORT INFORMATION
  Report Type: 
  Country: None (occurrence: None)
  Receive Date: 20081114
  Receipt Date: 20081031
  Transmission Date: 20090506
  Serious: Yes (Death, Life-Threatening, Other)
  Sender: FDA-Public Use
  Company Number: 2007US002837

PATIENT
  Age: 7 Year
  Sex: Male
  Weight: 16.7 kg

DRUGS (50)
  1. AMBISOME [Suspect]
     Indication: FUNGAL INFECTION
     Dosage: 2.5 MG/KG, UID/QD, IV NOS
     Route: 042
     Dates: start: 20071019, end: 20071020
  2. AMBISOME [Suspect]
     Indication: FUNGAL INFECTION
     Dosage: 2.5 MG/KG, UID/QD, IV NOS
     Route: 042
     Dates: start: 20071022, end: 20071108
  3. IMMUNE GLOBULIN (HUMAN) [Suspect]
     Indication: HAEMOLYSIS
     Dosage: IV NOS
     Route: 042
     Dates: start: 20071031
  4. SULFAMETHAZOLE W/TRIMETHOPRIM (SULFAMETHAZOLE, TRIMETHOPRIM) [Concomitant]
  5. FUNGUARD (MICAFUNGIN SODIUM) [Concomitant]
  6. VFEND [Concomitant]
  7. ASPARA K (ASPARTATE POTASSIUM) [Concomitant]
  8. ALBUMIN (HUMAN) [Concomitant]
  9. ISOZOL (THIAMYLAL SODIUM) [Concomitant]
  10. DOPAMINE HYDROCHLORIDE [Concomitant]
  11. PANTOL (PANTHENOL) [Concomitant]
  12. FRAGMIN [Concomitant]
  13. ELASPOL (SIVELESTAT) [Concomitant]
  14. GLUCOSE (GLUCOSE) [Concomitant]
  15. SOHVITA (VITAMINS NOS) [Concomitant]
  16. CEFTAZIDIME [Concomitant]
  17. METHYLPREDNISOLONE SODIUM SUCCINATE [Concomitant]
  18. REMINARON (GABEXATE MESILATE) [Concomitant]
  19. GANCICLOVIR [Concomitant]
  20. BENAMBAX (PENTAMIDINE) [Concomitant]
  21. ELEMENMIC (MINERALS NOS) [Concomitant]
  22. OMEPRAL [Concomitant]
  23. PN TWIN (AMINO ACIDS NOS, ELECTROLYTES NOS, CARBOHYDRATES NOS) [Concomitant]
  24. MINOCYCLINE HCL [Concomitant]
  25. LASIX [Concomitant]
  26. BACTRIM [Concomitant]
  27. BISOLVON (BROMHEXINE HYDROCHLORIDE) [Concomitant]
  28. MEPIVACAINE HCL [Concomitant]
  29. NOVO HEPARIN SODIUM (HEPARIN CALCIUM) [Concomitant]
  30. ZYVOX [Concomitant]
  31. ALBUMINAR (ALBUMIN HUMAN) [Concomitant]
  32. HAEMODIALYTICS AND HAEMOFILTRATES [Concomitant]
  33. MEROPEN (MEROPENEM) [Concomitant]
  34. FUTHAN (NAFAMOSTAT MESILATE) [Concomitant]
  35. BICARBONAT (SODIUM BICARBONATE) [Concomitant]
  36. HANP [Concomitant]
  37. PRECEDEX [Concomitant]
  38. POTASSIUM CHLORIDE [Concomitant]
  39. GASTROGRAFIN (SODIUM AMIDOTRIZOATE) [Concomitant]
  40. DOBUTAMIN (DOBUTAMINE HYDROCHLORIDE) [Concomitant]
  41. CORETEC (OLPRINONE HYDROCHLORIDE) [Concomitant]
  42. VENOGLOBULIN-I [Concomitant]
  43. MAGNESIUM SULFATE [Concomitant]
  44. ALINAMIN F (FURSULTIAMINE) [Concomitant]
  45. ISOSORBIDE DINITRATE [Concomitant]
  46. VECURONIUM BROMIDE [Concomitant]
  47. MILRILA (MILRINONE) [Concomitant]
  48. HESPANDER (HETASTARCH) [Concomitant]
  49. CONCLYTE MG (MAGNESIUM  SULFATE) [Concomitant]
  50. MIDAZOLAM HCL [Concomitant]

REACTIONS (34)
  - ASCITES [None]
  - ASPARTATE AMINOTRANSFERASE INCREASED [None]
  - BETA 2 MICROGLOBULIN INCREASED [None]
  - BLOOD ALBUMIN DECREASED [None]
  - BLOOD CHOLESTEROL DECREASED [None]
  - BLOOD CHOLESTEROL INCREASED [None]
  - BLOOD GLUCOSE DECREASED [None]
  - BLOOD MAGNESIUM INCREASED [None]
  - BLOOD POTASSIUM DECREASED [None]
  - BLOOD POTASSIUM INCREASED [None]
  - BLOOD PRESSURE DECREASED [None]
  - BLOOD UREA INCREASED [None]
  - BLOOD URIC ACID DECREASED [None]
  - BONE MARROW FAILURE [None]
  - CONJUNCTIVITIS [None]
  - DECUBITUS ULCER [None]
  - DEHYDRATION [None]
  - DIALYSIS [None]
  - DISSEMINATED INTRAVASCULAR COAGULATION [None]
  - ERYTHEMA [None]
  - ERYTHROBLAST COUNT INCREASED [None]
  - HAEMOGLOBIN INCREASED [None]
  - LIPIDS INCREASED [None]
  - LIVER FUNCTION TEST ABNORMAL [None]
  - METAMYELOCYTE PERCENTAGE INCREASED [None]
  - MONOCYTE PERCENTAGE INCREASED [None]
  - MULTI-ORGAN FAILURE [None]
  - MYELOCYTE PRESENT [None]
  - OEDEMA [None]
  - PROTEIN TOTAL DECREASED [None]
  - RESPIRATORY FAILURE [None]
  - RIGHT VENTRICULAR FAILURE [None]
  - TOTAL CHOLESTEROL/HDL RATIO DECREASED [None]
  - URINE OUTPUT DECREASED [None]
